FAERS Safety Report 17510300 (Version 4)
Quarter: 2020Q3

REPORT INFORMATION
  Report Type: Other
  Country: CA (occurrence: CA)
  Receive Date: 20200306
  Receipt Date: 20200818
  Transmission Date: 20201102
  Serious: Yes (Death, Other)
  Sender: FDA-Public Use
  Company Number: CA-ASTELLAS-2020US008540

PATIENT
  Age: 23 Month
  Sex: Female

DRUGS (38)
  1. ACYCLOVIR SODIUM. [Suspect]
     Active Substance: ACYCLOVIR SODIUM
     Indication: OFF LABEL USE
     Dosage: UNK UNK, UNKNOWN FREQ.
     Route: 065
  2. ANTITHYMOCYTE IMMUNOGLOBULIN [Suspect]
     Active Substance: THYMOCYTE IMMUNE GLOBULIN NOS
     Indication: HEART TRANSPLANT
  3. CICLOSPORIN [Suspect]
     Active Substance: CYCLOSPORINE
     Indication: OFF LABEL USE
     Dosage: UNK UNK, UNKNOWN FREQ.
     Route: 065
  4. CYCLOPHOSPHAMIDE. [Suspect]
     Active Substance: CYCLOPHOSPHAMIDE
     Indication: OFF LABEL USE
     Dosage: UNK UNK, UNKNOWN FREQ.
     Route: 065
  5. MYCOPHENOLATE MOFETIL. [Suspect]
     Active Substance: MYCOPHENOLATE MOFETIL
     Indication: OFF LABEL USE
     Dosage: UNK UNK, UNKNOWN FREQ.
     Route: 065
  6. ANTITHYMOCYTE IMMUNOGLOBULIN (RABBIT) [Suspect]
     Active Substance: LAPINE T-LYMPHOCYTE IMMUNE GLOBULIN
     Indication: HEART TRANSPLANT
  7. DOXORUBICIN HYDROCHLORIDE INJECTION [Suspect]
     Active Substance: DOXORUBICIN HYDROCHLORIDE
     Indication: CHEMOTHERAPY
  8. GAMMAGARD [Suspect]
     Active Substance: HUMAN IMMUNOGLOBULIN G
     Indication: CYTOMEGALOVIRUS INFECTION
  9. RITUXIMAB. [Suspect]
     Active Substance: RITUXIMAB
     Indication: OFF LABEL USE
     Dosage: UNK UNK, UNKNOWN FREQ.
     Route: 065
  10. VINCRISTINE SULFATE. [Suspect]
     Active Substance: VINCRISTINE SULFATE
     Indication: OFF LABEL USE
     Dosage: UNK UNK, UNKNOWN FREQ.
     Route: 065
  11. TACROLIMUS. [Suspect]
     Active Substance: TACROLIMUS
     Indication: HEART TRANSPLANT
  12. ANTITHYMOCYTE IMMUNOGLOBULIN [Suspect]
     Active Substance: THYMOCYTE IMMUNE GLOBULIN NOS
     Indication: OFF LABEL USE
     Dosage: UNK UNK, UNKNOWN FREQ.
     Route: 065
  13. ANTITHYMOCYTE IMMUNOGLOBULIN [Suspect]
     Active Substance: THYMOCYTE IMMUNE GLOBULIN NOS
     Indication: IMMUNOSUPPRESSION
  14. GAMMAGARD [Suspect]
     Active Substance: HUMAN IMMUNOGLOBULIN G
     Indication: PNEUMONIA
  15. MYCOPHENOLATE MOFETIL. [Suspect]
     Active Substance: MYCOPHENOLATE MOFETIL
     Indication: HEART TRANSPLANT
  16. PREDNISONE. [Suspect]
     Active Substance: PREDNISONE
     Indication: IMMUNOSUPPRESSION
  17. PEGYLATED LIPOSOMAL DOXORUBICIN HYDROCHLORIDE [Suspect]
     Active Substance: DOXORUBICIN HYDROCHLORIDE
     Indication: OFF LABEL USE
     Dosage: UNK UNK, UNKNOWN FREQ.
     Route: 065
  18. PEGYLATED LIPOSOMAL DOXORUBICIN HYDROCHLORIDE [Suspect]
     Active Substance: DOXORUBICIN HYDROCHLORIDE
     Indication: CHEMOTHERAPY
  19. PROCYTOX [Suspect]
     Active Substance: CYCLOPHOSPHAMIDE
     Indication: OFF LABEL USE
     Dosage: 2000 MG/VIAL, UNKNOWN FREQ.
     Route: 065
  20. PROCYTOX [Suspect]
     Active Substance: CYCLOPHOSPHAMIDE
     Indication: CHEMOTHERAPY
  21. DOXORUBICIN HYDROCHLORIDE INJECTION [Suspect]
     Active Substance: DOXORUBICIN HYDROCHLORIDE
     Indication: OFF LABEL USE
     Dosage: UNK UNK, UNKNOWN FREQ.
     Route: 065
  22. GANCICLOVIR. [Suspect]
     Active Substance: GANCICLOVIR
     Indication: OFF LABEL USE
     Dosage: UNK UNK, UNKNOWN FREQ.
     Route: 048
  23. GANCICLOVIR. [Suspect]
     Active Substance: GANCICLOVIR
     Indication: PNEUMONIA
     Dosage: UNK UNK, UNKNOWN FREQ.
     Route: 042
  24. GANCICLOVIR. [Suspect]
     Active Substance: GANCICLOVIR
     Indication: CYTOMEGALOVIRUS INFECTION
     Dosage: UNK UNK, UNKNOWN FREQ.
     Route: 065
  25. MYCOPHENOLATE MOFETIL. [Suspect]
     Active Substance: MYCOPHENOLATE MOFETIL
     Indication: IMMUNOSUPPRESSION
  26. PREDNISONE. [Suspect]
     Active Substance: PREDNISONE
     Indication: OFF LABEL USE
     Dosage: UNK UNK, UNKNOWN FREQ.
     Route: 065
  27. VINCRISTINE SULFATE. [Suspect]
     Active Substance: VINCRISTINE SULFATE
     Indication: CHEMOTHERAPY
  28. CYCLOSPORINE. [Suspect]
     Active Substance: CYCLOSPORINE
     Indication: OFF LABEL USE
  29. ANTITHYMOCYTE IMMUNOGLOBULIN (RABBIT) [Suspect]
     Active Substance: LAPINE T-LYMPHOCYTE IMMUNE GLOBULIN
     Indication: OFF LABEL USE
     Dosage: UNK UNK, UNKNOWN FREQ.
     Route: 065
  30. GAMMAGARD [Suspect]
     Active Substance: HUMAN IMMUNOGLOBULIN G
     Indication: OFF LABEL USE
     Dosage: UNK UNK, UNKNOWN FREQ.
     Route: 042
  31. RITUXIMAB. [Suspect]
     Active Substance: RITUXIMAB
     Indication: PRODUCT USED FOR UNKNOWN INDICATION
  32. ANTITHYMOCYTE IMMUNOGLOBULIN (RABBIT) [Suspect]
     Active Substance: LAPINE T-LYMPHOCYTE IMMUNE GLOBULIN
     Indication: IMMUNOSUPPRESSION
  33. CICLOSPORIN [Suspect]
     Active Substance: CYCLOSPORINE
     Indication: IMMUNOSUPPRESSION
  34. CYCLOSPORINE. [Suspect]
     Active Substance: CYCLOSPORINE
     Indication: CHEMOTHERAPY
  35. TACROLIMUS. [Suspect]
     Active Substance: TACROLIMUS
     Indication: IMMUNOSUPPRESSION
     Dosage: UNK UNK, UNKNOWN FREQ.
     Route: 065
  36. ACYCLOVIR SODIUM. [Suspect]
     Active Substance: ACYCLOVIR SODIUM
     Indication: ANTIVIRAL PROPHYLAXIS
  37. CYCLOPHOSPHAMIDE. [Suspect]
     Active Substance: CYCLOPHOSPHAMIDE
     Indication: CHEMOTHERAPY
  38. CYCLOSPORINE. [Suspect]
     Active Substance: CYCLOSPORINE
     Indication: IMMUNOSUPPRESSANT DRUG THERAPY
     Dosage: UNK UNK, UNKNOWN FREQ.
     Route: 065

REACTIONS (9)
  - Multiple organ dysfunction syndrome [Fatal]
  - Off label use [Unknown]
  - Smooth muscle cell neoplasm [Fatal]
  - Intentional product use issue [Unknown]
  - Haemorrhage intracranial [Fatal]
  - Post transplant lymphoproliferative disorder [Fatal]
  - Gastric ulcer [Fatal]
  - Epstein-Barr virus infection [Fatal]
  - Drug ineffective [Unknown]
